FAERS Safety Report 6773903-0 (Version None)
Quarter: 2010Q2

REPORT INFORMATION
  Report Type: 
  Country: None (occurrence: None)
  Receive Date: 20100617
  Receipt Date: 20100607
  Transmission Date: 20101027
  Serious: No
  Sender: FDA-Public Use
  Company Number: 2009BI037142

PATIENT
  Sex: Male
  Weight: 115 kg

DRUGS (2)
  1. TYSABRI [Suspect]
     Indication: MULTIPLE SCLEROSIS
     Route: 042
     Dates: start: 20090929
  2. PROZAC [Concomitant]
     Indication: DEPRESSION

REACTIONS (7)
  - FALL [None]
  - FATIGUE [None]
  - LIP SWELLING [None]
  - POOR VENOUS ACCESS [None]
  - STRESS [None]
  - SWELLING FACE [None]
  - VEIN DISORDER [None]
